FAERS Safety Report 12539957 (Version 1)
Quarter: 2016Q3

REPORT INFORMATION
  Report Type: Spontaneous
  Country: US (occurrence: None)
  Receive Date: 20160707
  Receipt Date: 20160707
  Transmission Date: 20161109
  Serious: Yes (Disabling)
  Sender: FDA-Public Use
  Company Number: None

PATIENT
  Age: 58 Year
  Sex: Female
  Weight: 68.04 kg

DRUGS (7)
  1. ESCITALOPRAM [Concomitant]
     Active Substance: ESCITALOPRAM OXALATE
  2. MAXZIDE [Concomitant]
     Active Substance: HYDROCHLOROTHIAZIDE\TRIAMTERENE
  3. LYRICA [Concomitant]
     Active Substance: PREGABALIN
  4. COQ10 [Concomitant]
     Active Substance: UBIDECARENONE
  5. VITAMIN D [Concomitant]
     Active Substance: CHOLECALCIFEROL
  6. LYRICA [Suspect]
     Active Substance: PREGABALIN
     Indication: NEURALGIA
     Dosage: 2 PILLS
     Route: 048
     Dates: start: 20160316
  7. MVI [Concomitant]
     Active Substance: VITAMINS

REACTIONS (5)
  - Gait disturbance [None]
  - Tinnitus [None]
  - Meniere^s disease [None]
  - Hypoacusis [None]
  - Dizziness [None]

NARRATIVE: CASE EVENT DATE: 20160507
